FAERS Safety Report 5209145-X (Version None)
Quarter: 2007Q1

REPORT INFORMATION
  Report Type: 
  Country: None (occurrence: None)
  Receive Date: 20070116
  Receipt Date: 20070102
  Transmission Date: 20070707
  Serious: Yes (Life-Threatening, Hospitalization, Disabling, Other)
  Sender: FDA-Public Use
  Company Number: US-MERCK-0611USA00645

PATIENT
  Age: 72 Year
  Sex: Female
  Weight: 64 kg

DRUGS (40)
  1. EMEND [Suspect]
     Indication: PROPHYLAXIS OF NAUSEA AND VOMITING
     Route: 048
     Dates: start: 20061020, end: 20061020
  2. EMEND [Suspect]
     Route: 048
     Dates: start: 20061021, end: 20061022
  3. EMEND [Suspect]
     Route: 048
     Dates: start: 20060928, end: 20060928
  4. EMEND [Suspect]
     Route: 048
     Dates: start: 20060929, end: 20060930
  5. TAXOL [Concomitant]
     Indication: NEOPLASM
     Route: 065
  6. DECADRON [Concomitant]
     Route: 065
     Dates: start: 20061020
  7. COUMADIN [Suspect]
     Indication: THROMBOSIS
     Route: 065
     Dates: start: 20060913, end: 20061005
  8. COUMADIN [Suspect]
     Route: 065
     Dates: start: 20060913, end: 20061009
  9. COUMADIN [Suspect]
     Route: 065
     Dates: start: 20061010, end: 20061010
  10. COUMADIN [Suspect]
     Route: 065
     Dates: start: 20061012, end: 20061013
  11. COUMADIN [Suspect]
     Route: 065
     Dates: start: 20061014, end: 20061015
  12. COUMADIN [Suspect]
     Route: 065
     Dates: start: 20061016, end: 20061016
  13. COUMADIN [Suspect]
     Route: 065
     Dates: start: 20061017, end: 20061017
  14. COUMADIN [Suspect]
     Route: 065
     Dates: start: 20061018, end: 20061022
  15. COUMADIN [Suspect]
     Route: 065
     Dates: start: 20061023, end: 20061023
  16. COUMADIN [Suspect]
     Route: 065
     Dates: start: 20061024, end: 20061024
  17. COUMADIN [Suspect]
     Route: 065
     Dates: start: 20061025, end: 20061025
  18. COUMADIN [Suspect]
     Route: 065
     Dates: start: 20061026, end: 20061026
  19. COUMADIN [Suspect]
     Route: 065
     Dates: start: 20061027, end: 20061029
  20. COUMADIN [Suspect]
     Route: 065
     Dates: start: 20061030, end: 20061105
  21. LIPITOR [Concomitant]
     Route: 065
  22. SYNTHROID [Concomitant]
     Route: 065
  23. OMEGA-3 MARINE TRIGLYCERIDES [Concomitant]
     Route: 065
  24. METFORMIN [Concomitant]
     Route: 065
  25. MIRTAZAPINE [Concomitant]
     Route: 065
  26. AMBIEN [Concomitant]
     Route: 065
     Dates: start: 20060801
  27. DOXORUBICIN [Concomitant]
     Route: 065
  28. CYCLOPHOSPHAMIDE [Concomitant]
     Route: 065
  29. NEULASTA [Concomitant]
     Route: 058
  30. LOVENOX [Concomitant]
     Route: 065
     Dates: start: 20060913
  31. LEVOXYL [Concomitant]
     Route: 065
  32. PROTONIX [Concomitant]
     Route: 065
  33. COMPAZINE [Concomitant]
     Route: 065
  34. REMERON [Concomitant]
     Route: 065
  35. GLUCOPHAGE [Concomitant]
     Route: 065
  36. PERCOCET [Concomitant]
     Route: 065
  37. CALCIUM (UNSPECIFIED) [Concomitant]
     Route: 065
  38. VITAMINS (UNSPECIFIED) [Concomitant]
     Route: 065
  39. ALBUTEROL [Concomitant]
     Route: 065
  40. FLOVENT [Concomitant]
     Route: 065

REACTIONS (5)
  - CATHETER RELATED INFECTION [None]
  - DRUG INTERACTION [None]
  - INTERNATIONAL NORMALISED RATIO DECREASED [None]
  - INTERNATIONAL NORMALISED RATIO INCREASED [None]
  - TACHYCARDIA [None]
